FAERS Safety Report 26195073 (Version 2)
Quarter: 2025Q4

REPORT INFORMATION
  Report Type: Spontaneous
  Country: US (occurrence: US)
  Receive Date: 20251224
  Receipt Date: 20251231
  Transmission Date: 20260118
  Serious: Yes (Other)
  Sender: ELI LILLY AND COMPANY
  Company Number: US-ELI_LILLY_AND_COMPANY-US202512026165

PATIENT
  Age: 58 Year
  Sex: Female

DRUGS (4)
  1. FORTEO [Suspect]
     Active Substance: TERIPARATIDE
     Indication: Bone density abnormal
     Dosage: UNK UNK, UNKNOWN
     Route: 065
     Dates: start: 202411, end: 202505
  2. FORTEO [Suspect]
     Active Substance: TERIPARATIDE
     Indication: Bone density abnormal
     Dosage: UNK UNK, UNKNOWN
     Route: 065
     Dates: start: 202411, end: 202505
  3. FORTEO [Suspect]
     Active Substance: TERIPARATIDE
     Dosage: UNK UNK, DAILY
     Route: 065
     Dates: start: 20251202, end: 20251215
  4. FORTEO [Suspect]
     Active Substance: TERIPARATIDE
     Dosage: UNK UNK, DAILY
     Route: 065
     Dates: start: 20251202, end: 20251215

REACTIONS (4)
  - Accident [Unknown]
  - Gait disturbance [Unknown]
  - Muscle twitching [Recovered/Resolved]
  - Pain in extremity [Recovered/Resolved]

NARRATIVE: CASE EVENT DATE: 20251206
